FAERS Safety Report 14919304 (Version 1)
Quarter: 2018Q2

REPORT INFORMATION
  Report Type: Spontaneous
  Country: US (occurrence: US)
  Receive Date: 20180521
  Receipt Date: 20180521
  Transmission Date: 20180711
  Serious: No
  Sender: FDA-Public Use
  Company Number: US-TAKEDA-2018TUS017249

PATIENT
  Sex: Male
  Weight: 70.3 kg

DRUGS (3)
  1. LISINOPRIL. [Concomitant]
     Active Substance: LISINOPRIL
     Indication: HYPERTENSION
     Dosage: 20 MG, UNK
     Route: 048
  2. FLUTICASONE. [Concomitant]
     Active Substance: FLUTICASONE
     Indication: SEASONAL ALLERGY
     Dosage: UNK
  3. ENTYVIO [Suspect]
     Active Substance: VEDOLIZUMAB
     Indication: COLITIS ULCERATIVE
     Dosage: 300 MG, UNK
     Route: 042
     Dates: start: 201710

REACTIONS (5)
  - Pain [Not Recovered/Not Resolved]
  - Abdominal pain [Not Recovered/Not Resolved]
  - Clostridium difficile infection [Not Recovered/Not Resolved]
  - Abdominal distension [Not Recovered/Not Resolved]
  - Gastrointestinal sounds abnormal [Not Recovered/Not Resolved]

NARRATIVE: CASE EVENT DATE: 2017
